FAERS Safety Report 8487864-X (Version None)
Quarter: 2012Q3

REPORT INFORMATION
  Report Type: 
  Country: None (occurrence: None)
  Receive Date: 20120705
  Receipt Date: 20120626
  Transmission Date: 20120928
  Serious: Yes (Hospitalization, Other)
  Sender: FDA-Public Use
  Company Number: US-BAYER-2012-045175

PATIENT
  Age: 52 Year
  Sex: Female
  Weight: 104.31 kg

DRUGS (2)
  1. YAZ [Suspect]
     Indication: PREMENSTRUAL SYNDROME
     Dosage: UNK
     Dates: start: 20060601, end: 20060901
  2. YAZ [Suspect]
     Indication: MENSTRUAL CYCLE MANAGEMENT

REACTIONS (8)
  - EMOTIONAL DISTRESS [None]
  - DEPRESSION [None]
  - PULMONARY EMBOLISM [None]
  - DEEP VEIN THROMBOSIS [None]
  - FEAR OF DEATH [None]
  - DYSPNOEA [None]
  - INJURY [None]
  - NERVOUSNESS [None]
